FAERS Safety Report 9866375 (Version 1)
Quarter: 2014Q1

REPORT INFORMATION
  Report Type: Report from Study
  Country: DE (occurrence: DE)
  Receive Date: 20140204
  Receipt Date: 20140204
  Transmission Date: 20141002
  Serious: Yes (Other)
  Sender: FDA-Public Use
  Company Number: DE-ROCHE-1341392

PATIENT
  Age: 62 Year
  Sex: Female

DRUGS (1)
  1. RITUXIMAB [Suspect]
     Indication: RHEUMATOID ARTHRITIS
     Dosage: LAST DOSE OF RITUXIMAB GIVEN ON 15/OCT/2012
     Route: 065
     Dates: end: 20121015

REACTIONS (2)
  - Cough [Not Recovered/Not Resolved]
  - Rheumatoid nodule [Not Recovered/Not Resolved]
